FAERS Safety Report 9556130 (Version 1)
Quarter: 2013Q3

REPORT INFORMATION
  Report Type: Spontaneous
  Country: US (occurrence: None)
  Receive Date: 20130726
  Receipt Date: 20130726
  Transmission Date: 20140515
  Serious: Yes (Hospitalization)
  Sender: FDA-Public Use
  Company Number: UTC-023039

PATIENT
  Age: 66 Year
  Sex: Female
  Weight: 59.1 kg

DRUGS (2)
  1. REMODULIN [Suspect]
     Indication: PULMONARY ARTERIAL HYPERTENSION
     Dosage: 141.12 UG/KG (0.098 UG/KG, 1 IN 1 MIN), SUBCUTANEOUS
     Route: 058
     Dates: start: 20110516
  2. ADCIRCA (TADALAFIL) [Concomitant]

REACTIONS (1)
  - Hypotension [None]
